FAERS Safety Report 6355033-5 (Version None)
Quarter: 2009Q3

REPORT INFORMATION
  Report Type: 
  Country: None (occurrence: None)
  Receive Date: 20090914
  Receipt Date: 20090907
  Transmission Date: 20100115
  Serious: Yes (Hospitalization)
  Sender: FDA-Public Use
  Company Number: B0592477A

PATIENT
  Age: 85 Year
  Sex: Female

DRUGS (2)
  1. VALTREX [Suspect]
     Indication: DRUG USE FOR UNKNOWN INDICATION
     Route: 048
  2. UNKNOWN DRUG [Concomitant]
     Indication: DRUG USE FOR UNKNOWN INDICATION
     Route: 065

REACTIONS (4)
  - HYPONATRAEMIA [None]
  - HYPOPHAGIA [None]
  - INAPPROPRIATE ANTIDIURETIC HORMONE SECRETION [None]
  - VOMITING [None]
